FAERS Safety Report 13966419 (Version 1)
Quarter: 2017Q3

REPORT INFORMATION
  Report Type: Spontaneous
  Country: JP (occurrence: JP)
  Receive Date: 20170913
  Receipt Date: 20170913
  Transmission Date: 20171128
  Serious: Yes (Other)
  Sender: FDA-Public Use
  Company Number: JP-ASTRAZENECA-2017SE92337

PATIENT
  Age: 72 Year
  Sex: Male

DRUGS (3)
  1. FORXIGA [Suspect]
     Active Substance: DAPAGLIFLOZIN
     Indication: TYPE 2 DIABETES MELLITUS
     Route: 048
     Dates: start: 201509
  2. ORAL REHYDRATION SOLUTION OTC MEDICATION [Concomitant]
     Dosage: OS-1 BY OTSUKA PHARMACEUTICAL, AT LEAST THREE BOTTLES DAILY
  3. FORXIGA [Suspect]
     Active Substance: DAPAGLIFLOZIN
     Indication: TYPE 2 DIABETES MELLITUS
     Route: 048
     Dates: start: 20170906

REACTIONS (3)
  - Cerebral infarction [Recovered/Resolved]
  - Weight decreased [Recovered/Resolved]
  - Weight increased [Not Recovered/Not Resolved]

NARRATIVE: CASE EVENT DATE: 201509
